FAERS Safety Report 24761818 (Version 1)
Quarter: 2024Q4

REPORT INFORMATION
  Report Type: Spontaneous
  Country: US (occurrence: US)
  Receive Date: 20241221
  Receipt Date: 20241221
  Transmission Date: 20250115
  Serious: Yes (Death, Hospitalization, Other)
  Sender: ALEXION PHARMACEUTICALS
  Company Number: US-ASTRAZENECA-202412USA016334US

PATIENT
  Age: 60 Year

DRUGS (12)
  1. SEROQUEL [Suspect]
     Active Substance: QUETIAPINE FUMARATE
     Route: 065
  2. SEROQUEL [Suspect]
     Active Substance: QUETIAPINE FUMARATE
     Route: 065
  3. SEROQUEL [Suspect]
     Active Substance: QUETIAPINE FUMARATE
     Route: 065
  4. SEROQUEL [Suspect]
     Active Substance: QUETIAPINE FUMARATE
     Route: 065
  5. AMLODIPINE [Suspect]
     Active Substance: AMLODIPINE BESYLATE
  6. ESCITALOPRAM [Suspect]
     Active Substance: ESCITALOPRAM OXALATE
  7. ATORVASTATIN [Suspect]
     Active Substance: ATORVASTATIN
  8. FAMOTIDINE [Suspect]
     Active Substance: FAMOTIDINE
  9. GABAPENTIN [Suspect]
     Active Substance: GABAPENTIN
  10. LINAGLIPTIN [Suspect]
     Active Substance: LINAGLIPTIN
  11. SOLIFENACIN [Suspect]
     Active Substance: SOLIFENACIN
  12. PREGABALIN [Suspect]
     Active Substance: PREGABALIN

REACTIONS (3)
  - Toxicity to various agents [Fatal]
  - Completed suicide [Fatal]
  - Cardio-respiratory arrest [Fatal]
